FAERS Safety Report 15916481 (Version 1)
Quarter: 2019Q1

REPORT INFORMATION
  Report Type: Spontaneous
  Country: US (occurrence: US)
  Receive Date: 20190205
  Receipt Date: 20190205
  Transmission Date: 20190417
  Serious: Yes (Other)
  Sender: FDA-Public Use
  Company Number: None

PATIENT
  Age: 23 Year
  Sex: Male
  Weight: 68.6 kg

DRUGS (5)
  1. MAGNESIUM SULFATE. [Concomitant]
     Active Substance: MAGNESIUM SULFATE
     Dates: start: 20181207, end: 20181207
  2. ROCURONIUM [Suspect]
     Active Substance: ROCURONIUM BROMIDE
     Indication: SURGERY
     Route: 042
     Dates: start: 20181207, end: 20181207
  3. FENTANYL. [Concomitant]
     Active Substance: FENTANYL
     Dates: start: 20181207, end: 20181207
  4. PROPOFOL. [Concomitant]
     Active Substance: PROPOFOL
     Dates: start: 20181207, end: 20181207
  5. LICODAINE [Concomitant]
     Dates: start: 20181207, end: 20181207

REACTIONS (1)
  - Drug ineffective [None]

NARRATIVE: CASE EVENT DATE: 20181207
